FAERS Safety Report 6631381-6 (Version None)
Quarter: 2010Q1

REPORT INFORMATION
  Report Type: 
  Country: None (occurrence: None)
  Receive Date: 20100311
  Receipt Date: 20100311
  Transmission Date: 20100710
  Serious: Yes (Life-Threatening, Hospitalization)
  Sender: FDA-Public Use
  Company Number: None

PATIENT
  Age: 40 Year
  Sex: Female
  Weight: 53.5244 kg

DRUGS (2)
  1. LAMOTRIGINE [Suspect]
     Dosage: PO
     Route: 048
  2. CITALOPRAM HYDROBROMIDE [Concomitant]

REACTIONS (3)
  - FEELING OF BODY TEMPERATURE CHANGE [None]
  - NO THERAPEUTIC RESPONSE [None]
  - STEVENS-JOHNSON SYNDROME [None]
